FAERS Safety Report 8748227 (Version 4)
Quarter: 2024Q3

REPORT INFORMATION
  Report Type: Spontaneous
  Country: HU (occurrence: HU)
  Receive Date: 20120827
  Receipt Date: 20240805
  Transmission Date: 20241016
  Serious: Yes (Death, Other)
  Sender: PFIZER
  Company Number: HU-PFIZER INC-2012208459

PATIENT
  Age: 29 Year
  Sex: Female

DRUGS (16)
  1. CARBOPLATIN [Suspect]
     Active Substance: CARBOPLATIN
     Indication: Non-Hodgkin^s lymphoma stage IV
     Dosage: 2 CYCLES
     Route: 065
     Dates: start: 2006
  2. CISPLATIN [Suspect]
     Active Substance: CISPLATIN
     Indication: Non-Hodgkin^s lymphoma stage IV
     Dosage: 2 CYCLES
     Route: 065
     Dates: start: 2006
  3. CYTARABINE [Suspect]
     Active Substance: CYTARABINE
     Indication: Non-Hodgkin^s lymphoma stage IV
     Dosage: 2 CYCLES
     Route: 065
     Dates: start: 2006
  4. DOXORUBICIN HYDROCHLORIDE [Suspect]
     Active Substance: DOXORUBICIN HYDROCHLORIDE
     Indication: Non-Hodgkin^s lymphoma stage IV
     Dosage: 8-CYCLE
     Route: 065
     Dates: start: 2006
  5. GEMCITABINE HYDROCHLORIDE [Suspect]
     Active Substance: GEMCITABINE HYDROCHLORIDE
     Indication: Non-Hodgkin^s lymphoma stage IV
     Dosage: UNK
     Route: 065
     Dates: start: 2007
  6. BLEOMYCIN [Suspect]
     Active Substance: BLEOMYCIN SULFATE
     Indication: Non-Hodgkin^s lymphoma stage IV
     Dosage: 8 CYCLE
     Route: 065
     Dates: start: 2006
  7. DACARBAZINE [Suspect]
     Active Substance: DACARBAZINE
     Indication: Non-Hodgkin^s lymphoma stage IV
     Dosage: 8 CYCLE
     Route: 065
     Dates: start: 2006
  8. DEXAMETHASONE SODIUM PHOSPHATE [Suspect]
     Active Substance: DEXAMETHASONE PHOSPHATE\DEXAMETHASONE SODIUM PHOSPHATE
     Indication: Non-Hodgkin^s lymphoma stage IV
     Dosage: 2 CYCLES
     Route: 065
     Dates: start: 2006
  9. ETOPOSIDE [Suspect]
     Active Substance: ETOPOSIDE
     Indication: Hodgkin^s disease
     Dosage: 2 CYCLES
     Route: 065
     Dates: start: 2006
  10. ETOPOSIDE [Suspect]
     Active Substance: ETOPOSIDE
     Indication: Non-Hodgkin^s lymphoma stage IV
     Dosage: UNK
     Route: 065
     Dates: start: 2007
  11. IFOSFAMIDE [Suspect]
     Active Substance: IFOSFAMIDE
     Indication: Hodgkin^s disease
     Dosage: UNK
     Route: 065
     Dates: start: 2006
  12. IFOSFAMIDE [Suspect]
     Active Substance: IFOSFAMIDE
     Indication: Non-Hodgkin^s lymphoma stage IV
     Dosage: 2 CYCLES
     Route: 065
     Dates: start: 2007
  13. DOXORUBICIN [Suspect]
     Active Substance: DOXORUBICIN
     Indication: Hodgkin^s disease
     Dosage: UNK
     Route: 065
  14. RITUXIMAB [Suspect]
     Active Substance: RITUXIMAB
     Indication: Non-Hodgkin^s lymphoma stage IV
     Dosage: UNK
     Route: 065
     Dates: start: 2007
  15. VINBLASTINE [Suspect]
     Active Substance: VINBLASTINE
     Indication: Non-Hodgkin^s lymphoma stage IV
     Dosage: 8 CYCLE
     Route: 065
     Dates: start: 2006
  16. VINORELBINE [Suspect]
     Active Substance: VINORELBINE TARTRATE
     Indication: Non-Hodgkin^s lymphoma stage IV
     Dosage: UNK
     Route: 065
     Dates: start: 2007

REACTIONS (3)
  - Cytomegalovirus infection [Fatal]
  - Haemophagocytic lymphohistiocytosis [Fatal]
  - Off label use [Unknown]

NARRATIVE: CASE EVENT DATE: 20060101
